FAERS Safety Report 17211675 (Version 1)
Quarter: 2019Q4

REPORT INFORMATION
  Report Type: Spontaneous
  Country: SE (occurrence: SE)
  Receive Date: 20191229
  Receipt Date: 20191229
  Transmission Date: 20200122
  Serious: Yes (Hospitalization)
  Sender: FDA-Public Use
  Company Number: SE-TEVA-2019-SE-1158784

PATIENT
  Sex: Female

DRUGS (3)
  1. CITODON [Suspect]
     Active Substance: ACETAMINOPHEN\CODEINE PHOSPHATE
     Dosage: 10 ST
     Dates: start: 20180109, end: 20180109
  2. PROPAVAN [Suspect]
     Active Substance: PROPIOMAZINE
     Dosage: 45 ST
     Route: 048
     Dates: start: 20180109, end: 20180109
  3. OXASCAND [Suspect]
     Active Substance: OXAZEPAM
     Dosage: 10 PCS A 10 MG   (100 MG)
     Dates: start: 20180109, end: 20180109

REACTIONS (2)
  - Intentional self-injury [Unknown]
  - Intentional overdose [Unknown]

NARRATIVE: CASE EVENT DATE: 20180109
